FAERS Safety Report 7635767-2 (Version None)
Quarter: 2011Q3

REPORT INFORMATION
  Report Type: 
  Country: None (occurrence: None)
  Receive Date: 20110726
  Receipt Date: 20110721
  Transmission Date: 20111222
  Serious: Yes (Other)
  Sender: FDA-Public Use
  Company Number: US-PFIZER INC-2011166915

PATIENT
  Sex: Female
  Weight: 114.29 kg

DRUGS (2)
  1. PROCARDIA [Suspect]
     Indication: HYPERTENSION
     Dosage: 30 MG, 3X/DAY
     Route: 048
  2. NIFEDIPINE [Suspect]
     Indication: HYPERTENSION
     Dosage: 30 MG, 1X/DAY
     Route: 048

REACTIONS (10)
  - MUSCULOSKELETAL DISCOMFORT [None]
  - ANXIETY [None]
  - EXOSTOSIS [None]
  - NAUSEA [None]
  - BACK DISORDER [None]
  - DIABETES MELLITUS [None]
  - ROAD TRAFFIC ACCIDENT [None]
  - THYROID DISORDER [None]
  - PANIC ATTACK [None]
  - DIZZINESS [None]
